FAERS Safety Report 10727428 (Version 1)
Quarter: 2015Q1

REPORT INFORMATION
  Report Type: Report from Study
  Country: NZ (occurrence: NZ)
  Receive Date: 20150121
  Receipt Date: 20150121
  Transmission Date: 20150721
  Serious: Yes (Hospitalization)
  Sender: FDA-Public Use
  Company Number: NZ-BAYER-2015-006050

PATIENT
  Age: 57 Year
  Sex: Female

DRUGS (6)
  1. AMLODIPINE [Concomitant]
     Active Substance: AMLODIPINE BESYLATE
     Indication: HYPERTENSION
     Dosage: 10 MG, QD
     Dates: start: 201212
  2. REGORAFENIB [Suspect]
     Active Substance: REGORAFENIB
     Indication: COLON CANCER METASTATIC
     Dosage: DAILY DOSE 160 MG
     Route: 048
     Dates: start: 20141120, end: 20141127
  3. IRINOTECAN [Concomitant]
     Active Substance: IRINOTECAN
     Indication: COLON CANCER METASTATIC
     Dosage: UNK
     Dates: end: 20141029
  4. OMEPRAZOLE. [Concomitant]
     Active Substance: OMEPRAZOLE
     Indication: GASTROOESOPHAGEAL REFLUX DISEASE
     Dosage: 20 MG, BID
     Dates: start: 20141128
  5. BEVACIZUMAB [Concomitant]
     Active Substance: BEVACIZUMAB
     Indication: COLON CANCER METASTATIC
     Dosage: UNK
     Dates: end: 20141029
  6. REGORAFENIB [Suspect]
     Active Substance: REGORAFENIB
     Indication: COLON CANCER METASTATIC
     Dosage: FOR THREE WEEKS, THEN ONE WEEK BREAK
     Route: 048
     Dates: start: 20141210, end: 20150107

REACTIONS (14)
  - Alanine aminotransferase increased [Recovering/Resolving]
  - Blood alkaline phosphatase increased [Recovering/Resolving]
  - Pyrexia [Recovering/Resolving]
  - Hepatic failure [Recovering/Resolving]
  - Blood bilirubin increased [Recovering/Resolving]
  - Dehydration [Recovering/Resolving]
  - Aspartate aminotransferase increased [Recovering/Resolving]
  - Dyspnoea [Recovering/Resolving]
  - Hepatic failure [Recovering/Resolving]
  - Liver function test abnormal [Recovering/Resolving]
  - Gamma-glutamyltransferase increased [Recovering/Resolving]
  - Rash [Recovering/Resolving]
  - Hyponatraemia [Recovering/Resolving]
  - Jaundice [Recovering/Resolving]

NARRATIVE: CASE EVENT DATE: 20141127
